FAERS Safety Report 6370021-0 (Version None)
Quarter: 2009Q3

REPORT INFORMATION
  Report Type: 
  Country: None (occurrence: None)
  Receive Date: 20090923
  Receipt Date: 20070813
  Transmission Date: 20100115
  Serious: Yes (Hospitalization, Other)
  Sender: FDA-Public Use
  Company Number: US-ASTRAZENECA-2006UW08143

PATIENT
  Age: 581 Month
  Sex: Male
  Weight: 98 kg

DRUGS (18)
  1. SEROQUEL [Suspect]
     Indication: SLEEP DISORDER
     Dosage: 50-100 MG
     Route: 048
     Dates: start: 20040301, end: 20060111
  2. SEROQUEL [Suspect]
     Route: 048
     Dates: start: 20050101, end: 20060101
  3. ZOLOFT [Concomitant]
  4. VALIUM [Concomitant]
  5. NORCO [Concomitant]
     Dosage: 10-325MG
     Dates: start: 20010508
  6. CODEINE SULFATE [Concomitant]
     Dates: end: 20070326
  7. TRAZODONE HYDROCHLORIDE [Concomitant]
     Route: 048
     Dates: end: 20070420
  8. OXYCODONE HCL AND ACETAMINOPHEN [Concomitant]
     Dosage: 5/500MG, 10/650MG
     Dates: start: 20010529
  9. PREVACID [Concomitant]
     Dates: start: 20030114
  10. ACTOS [Concomitant]
     Dates: start: 20060110, end: 20060120
  11. PROTONIX [Concomitant]
     Dates: start: 20020205
  12. ALBUTEROL [Concomitant]
     Dates: start: 20030909
  13. NEXIUM [Concomitant]
     Dates: start: 20011201
  14. OMEPRAZOLE [Concomitant]
     Dates: start: 20050713
  15. KEPPRA [Concomitant]
     Dates: start: 20041214
  16. ASACOL [Concomitant]
     Dates: start: 20050308
  17. GEODON [Concomitant]
     Dates: start: 20060111
  18. OXYCODONE HCL [Concomitant]
     Dosage: 5-15 MG
     Dates: start: 20041124

REACTIONS (4)
  - DIABETES MELLITUS [None]
  - DIABETIC COMA [None]
  - HYPOGLYCAEMIA [None]
  - TYPE 2 DIABETES MELLITUS [None]
